FAERS Safety Report 5303443-7 (Version None)
Quarter: 2007Q2

REPORT INFORMATION
  Report Type: 
  Country: None (occurrence: None)
  Receive Date: 20070420
  Receipt Date: 20070312
  Transmission Date: 20071010
  Serious: Yes (Other)
  Sender: FDA-Public Use
  Company Number: US-SANOFI-SYNTHELABO-A03200601850

PATIENT
  Sex: Female

DRUGS (7)
  1. AMBIEN [Suspect]
     Indication: DRUG USE FOR UNKNOWN INDICATION
     Route: 048
     Dates: start: 20040629, end: 20040703
  2. ACETAMINOPHEN AND HYDROCODONE BITARTRATE [Concomitant]
     Dosage: 5/500 MG Q4H PRN
     Route: 048
  3. PAXIL CR [Concomitant]
     Route: 048
  4. PAXIL CR [Concomitant]
     Route: 048
  5. PAXIL CR [Concomitant]
     Route: 048
  6. ALTACE [Concomitant]
     Route: 048
     Dates: start: 20060629
  7. ATENOLOL [Concomitant]
     Route: 048
     Dates: start: 20040629

REACTIONS (6)
  - AMNESIA [None]
  - CONTUSION [None]
  - DRUG EFFECT INCREASED [None]
  - PSYCHOMOTOR RETARDATION [None]
  - ROAD TRAFFIC ACCIDENT [None]
  - SLEEP WALKING [None]
